FAERS Safety Report 8465186-0 (Version None)
Quarter: 2012Q2

REPORT INFORMATION
  Report Type: 
  Country: None (occurrence: None)
  Receive Date: 20120626
  Receipt Date: 20120620
  Transmission Date: 20120825
  Serious: Yes (Hospitalization)
  Sender: FDA-Public Use
  Company Number: GR-JNJFOC-20120601937

PATIENT
  Sex: Male

DRUGS (1)
  1. STELARA [Suspect]
     Indication: PSORIASIS
     Route: 058
     Dates: start: 20111203

REACTIONS (4)
  - DRUG DOSE OMISSION [None]
  - ADVERSE EVENT [None]
  - HAEMATOCRIT DECREASED [None]
  - UPPER RESPIRATORY TRACT INFECTION [None]
